FAERS Safety Report 21630766 (Version 1)
Quarter: 2022Q4

REPORT INFORMATION
  Report Type: Report from Study
  Country: None (occurrence: ES)
  Receive Date: 20221123
  Receipt Date: 20221123
  Transmission Date: 20230112
  Serious: No
  Sender: FDA-Public Use
  Company Number: ES-AKCEA THERAPEUTICS, INC.-2022IS004320

PATIENT
  Age: 79 Year
  Sex: Male

DRUGS (2)
  1. TEGSEDI [Suspect]
     Active Substance: INOTERSEN SODIUM
     Indication: Hereditary neuropathic amyloidosis
     Route: 065
  2. DEVICE [Suspect]
     Active Substance: DEVICE

REACTIONS (7)
  - Urinary incontinence [Not Recovered/Not Resolved]
  - Wheelchair user [Not Recovered/Not Resolved]
  - Protein total decreased [Unknown]
  - Vitamin D decreased [Unknown]
  - Immunoglobulins decreased [Unknown]
  - Blood albumin decreased [Unknown]
  - Prealbumin decreased [Unknown]
